FAERS Safety Report 6644557-9 (Version None)
Quarter: 2010Q1

REPORT INFORMATION
  Report Type: 
  Country: None (occurrence: None)
  Receive Date: 20100304
  Receipt Date: 20001030
  Transmission Date: 20100710
  Serious: Yes (Disabling, Other)
  Sender: FDA-Public Use
  Company Number: BDI-002576

PATIENT
  Age: 31 Year
  Sex: Female
  Weight: 59.1 kg

DRUGS (3)
  1. ISOVUE-300 [Suspect]
     Indication: BACK PAIN
     Dosage: 10ML ONCE INTRATHECAL
     Route: 037
     Dates: start: 20001013, end: 20001013
  2. ISOVUE-300 [Suspect]
     Indication: COMPUTERISED TOMOGRAM
     Dosage: 10ML ONCE INTRATHECAL
     Route: 037
     Dates: start: 20001013, end: 20001013
  3. ISOVUE-300 [Suspect]
     Indication: SPINAL MYELOGRAM
     Dosage: 10ML ONCE INTRATHECAL
     Route: 037
     Dates: start: 20001013, end: 20001013

REACTIONS (4)
  - HEADACHE [None]
  - INCORRECT ROUTE OF DRUG ADMINISTRATION [None]
  - NAUSEA [None]
  - VOMITING [None]
